FAERS Safety Report 4462593-8 (Version None)
Quarter: 2004Q3

REPORT INFORMATION
  Report Type: 
  Country: None (occurrence: None)
  Receive Date: 20040928
  Receipt Date: 20040914
  Transmission Date: 20050211
  Serious: Yes (Hospitalization)
  Sender: FDA-Public Use
  Company Number: 2004233889GR

PATIENT
  Age: 12 Year
  Sex: Female

DRUGS (1)
  1. SOMAVERT [Suspect]
     Indication: MARFAN'S SYNDROME
     Dates: start: 20040801, end: 20040912

REACTIONS (4)
  - BLOOD AMYLASE INCREASED [None]
  - CHOLELITHIASIS [None]
  - HEPATIC ENZYME INCREASED [None]
  - INSULIN-LIKE GROWTH FACTOR INCREASED [None]
